FAERS Safety Report 22130351 (Version 1)
Quarter: 2023Q1

REPORT INFORMATION
  Report Type: Spontaneous
  Country: US (occurrence: None)
  Receive Date: 20230322
  Receipt Date: 20230322
  Transmission Date: 20230417
  Serious: Yes (Disabling)
  Sender: FDA-Public Use
  Company Number: None

PATIENT
  Age: 53 Year
  Sex: Male
  Weight: 74.25 kg

DRUGS (2)
  1. REFRESH RELIEVA [Suspect]
     Active Substance: CARBOXYMETHYLCELLULOSE SODIUM\GLYCERIN
     Indication: Ocular hyperaemia
     Dosage: FREQUENCY : TWICE A DAY;?
     Route: 047
     Dates: start: 20221223, end: 20230321
  2. CIPROFLOXACIN [Concomitant]
     Active Substance: CIPROFLOXACIN

REACTIONS (8)
  - Eye pain [None]
  - Ocular discomfort [None]
  - Eye discharge [None]
  - Ocular hyperaemia [None]
  - Swelling of eyelid [None]
  - Foreign body sensation in eyes [None]
  - Vision blurred [None]
  - Eye infection bacterial [None]

NARRATIVE: CASE EVENT DATE: 20230320
